FAERS Safety Report 10794186 (Version 2)
Quarter: 2015Q3

REPORT INFORMATION
  Report Type: Spontaneous
  Country: US (occurrence: US)
  Receive Date: 20150213
  Receipt Date: 20150702
  Transmission Date: 20151125
  Serious: Yes (Other)
  Sender: FDA-Public Use
  Company Number: US-GLAXOSMITHKLINE-US2015019547

PATIENT
  Age: 80 Year
  Sex: Male

DRUGS (5)
  1. BREO ELLIPTA [Suspect]
     Active Substance: FLUTICASONE FUROATE\VILANTEROL TRIFENATATE
     Indication: CHRONIC OBSTRUCTIVE PULMONARY DISEASE
     Dosage: UNK, QD
     Route: 055
     Dates: start: 20150210
  2. BREO ELLIPTA [Suspect]
     Active Substance: FLUTICASONE FUROATE\VILANTEROL TRIFENATATE
     Dosage: 1 PUFF(S), UNK
     Dates: end: 20150629
  3. VENTOLIN HFA [Suspect]
     Active Substance: ALBUTEROL SULFATE
     Indication: CHRONIC OBSTRUCTIVE PULMONARY DISEASE
     Dosage: 1 PUFF(S), PRN
     Route: 055
  4. TEMAZEPAM. [Concomitant]
     Active Substance: TEMAZEPAM
  5. NAPROSYN [Concomitant]
     Active Substance: NAPROXEN

REACTIONS (6)
  - Dyspnoea [Recovered/Resolved]
  - Blood glucose increased [Not Recovered/Not Resolved]
  - Respiratory tract infection [Recovering/Resolving]
  - Productive cough [Recovered/Resolved]
  - Off label use [Unknown]
  - Chest pain [Recovered/Resolved]

NARRATIVE: CASE EVENT DATE: 201501
